FAERS Safety Report 6916024-6 (Version None)
Quarter: 2010Q3

REPORT INFORMATION
  Report Type: 
  Country: None (occurrence: None)
  Receive Date: 20100810
  Receipt Date: 20100730
  Transmission Date: 20110219
  Serious: Yes (Hospitalization, Other)
  Sender: FDA-Public Use
  Company Number: FR-BIOGENIDEC-2010BI019683

PATIENT
  Age: 28 Year
  Sex: Female

DRUGS (6)
  1. TYSABRI [Suspect]
     Indication: MULTIPLE SCLEROSIS
     Route: 042
     Dates: start: 20080129, end: 20100510
  2. ANSATIPIN [Concomitant]
  3. MYAMBUTOL [Concomitant]
  4. CLARITHROMYCIN [Concomitant]
  5. AMIKACIN [Concomitant]
  6. KEPPRA [Concomitant]

REACTIONS (1)
  - ATYPICAL MYCOBACTERIAL INFECTION [None]
